FAERS Safety Report 21478430 (Version 2)
Quarter: 2022Q4

REPORT INFORMATION
  Report Type: Report from Study
  Country: US (occurrence: US)
  Receive Date: 20221019
  Receipt Date: 20221129
  Transmission Date: 20230113
  Serious: No
  Sender: FDA-Public Use
  Company Number: US-BIOVITRUM-2022US11911

PATIENT
  Sex: Female

DRUGS (1)
  1. DOPTELET [Suspect]
     Active Substance: AVATROMBOPAG MALEATE
     Indication: Immune thrombocytopenia
     Dates: start: 20220929

REACTIONS (5)
  - Bone pain [Unknown]
  - Pelvic pain [Unknown]
  - Nausea [Unknown]
  - Headache [Unknown]
  - Product dose omission in error [Unknown]
